FAERS Safety Report 4589409-3 (Version None)
Quarter: 2005Q1

REPORT INFORMATION
  Report Type: 
  Country: None (occurrence: None)
  Receive Date: 20050216
  Receipt Date: 20050207
  Transmission Date: 20050727
  Serious: Yes (Other)
  Sender: FDA-Public Use
  Company Number: 200510004BCC

PATIENT
  Age: 23 Year
  Sex: Female
  Weight: 90.7194 kg

DRUGS (2)
  1. CAMPHO-PHENIQUE COLD SORE GEL [Suspect]
     Indication: HERPES SIMPLEX
     Dosage: PRN, TOPICAL
     Route: 061
     Dates: start: 20050102
  2. PRENATAL VITAMINS [Concomitant]

REACTIONS (3)
  - ABORTION SPONTANEOUS [None]
  - APPLICATION SITE DERMATITIS [None]
  - DRUG EXPOSURE DURING PREGNANCY [None]
